FAERS Safety Report 6344832-1 (Version None)
Quarter: 2009Q3

REPORT INFORMATION
  Report Type: 
  Country: None (occurrence: None)
  Receive Date: 20090904
  Receipt Date: 20090824
  Transmission Date: 20100115
  Serious: Yes (Hospitalization)
  Sender: FDA-Public Use
  Company Number: ALK_00915_2009

PATIENT
  Sex: Male
  Weight: 77.1115 kg

DRUGS (1)
  1. VIVITROL [Suspect]
     Indication: ALCOHOLISM
     Dosage: 380 MG 1X MONTH INTRAMUSCULAR
     Route: 030
     Dates: start: 20090629, end: 20090629

REACTIONS (4)
  - INJECTION SITE INFECTION [None]
  - INJECTION SITE PAIN [None]
  - INJECTION SITE REACTION [None]
  - MUSCULAR WEAKNESS [None]
